FAERS Safety Report 23761267 (Version 1)
Quarter: 2024Q2

REPORT INFORMATION
  Report Type: Report from Study
  Country: US (occurrence: US)
  Receive Date: 20240419
  Receipt Date: 20240419
  Transmission Date: 20240715
  Serious: Yes (Other)
  Sender: FDA-Public Use
  Company Number: US-GILEAD-2024-0669682

PATIENT
  Sex: Female
  Weight: 46.259 kg

DRUGS (1)
  1. TENOFOVIR ALAFENAMIDE [Suspect]
     Active Substance: TENOFOVIR ALAFENAMIDE
     Indication: Chronic hepatitis B
     Dosage: UNK
     Route: 065

REACTIONS (3)
  - Stent placement [Unknown]
  - Weight abnormal [Not Recovered/Not Resolved]
  - Fatigue [Unknown]

NARRATIVE: CASE EVENT DATE: 20230101
